FAERS Safety Report 13360673 (Version 6)
Quarter: 2017Q4

REPORT INFORMATION
  Report Type: Spontaneous
  Country: US (occurrence: US)
  Receive Date: 20170322
  Receipt Date: 20171031
  Transmission Date: 20180320
  Serious: No
  Sender: FDA-Public Use
  Company Number: US-ACTELION-A-NJ2017-151454

PATIENT
  Age: 68 Year
  Sex: Female

DRUGS (2)
  1. UPTRAVI [Suspect]
     Active Substance: SELEXIPAG
     Indication: PULMONARY HYPERTENSION
     Dosage: 400 MCG, BID
     Route: 048
     Dates: start: 20170602
  2. OPSUMIT [Suspect]
     Active Substance: MACITENTAN
     Indication: PULMONARY HYPERTENSION
     Dosage: 10 MG, QD
     Route: 048
     Dates: start: 20160211

REACTIONS (9)
  - Haemorrhoidal haemorrhage [Unknown]
  - Salivary hypersecretion [Unknown]
  - Weight gain poor [Unknown]
  - Malaise [Unknown]
  - Gastric infection [Not Recovered/Not Resolved]
  - Diarrhoea [Recovering/Resolving]
  - Myalgia [Unknown]
  - Constipation [Not Recovered/Not Resolved]
  - Pain in jaw [Unknown]

NARRATIVE: CASE EVENT DATE: 2017
